FAERS Safety Report 5814066-5 (Version None)
Quarter: 2008Q3

REPORT INFORMATION
  Report Type: 
  Country: None (occurrence: None)
  Receive Date: 20080717
  Receipt Date: 20080625
  Transmission Date: 20090109
  Serious: No
  Sender: FDA-Public Use
  Company Number: US-BOEHRINGER INGELHEIM GMBH, GERMANY-2007-BP-26474BP

PATIENT
  Sex: Female

DRUGS (8)
  1. SPIRIVA [Suspect]
     Indication: CHRONIC OBSTRUCTIVE PULMONARY DISEASE
     Dates: start: 20070501
  2. SPIRIVA [Suspect]
     Indication: ASTHMA
  3. SPIRIVA [Suspect]
     Indication: EMPHYSEMA
  4. SPIRIVA [Suspect]
     Indication: DYSPNOEA
  5. SPIRIVA [Suspect]
     Indication: BRONCHITIS CHRONIC
  6. ALBUTEROL SULFATE [Concomitant]
     Indication: DYSPNOEA
  7. ATROVENT [Concomitant]
     Indication: DYSPNOEA
  8. FORADIL [Concomitant]

REACTIONS (2)
  - DRUG INTOLERANCE [None]
  - MALAISE [None]
